FAERS Safety Report 23665716 (Version 1)
Quarter: 2024Q1

REPORT INFORMATION
  Report Type: Report from Study
  Country: NL (occurrence: NL)
  Receive Date: 20240323
  Receipt Date: 20240323
  Transmission Date: 20240410
  Serious: Yes (Death, Life-Threatening, Other)
  Sender: FDA-Public Use
  Company Number: NL-ABBVIE-5463585

PATIENT
  Sex: Female
  Weight: 51 kg

DRUGS (9)
  1. CARBIDOPA\LEVODOPA [Suspect]
     Active Substance: CARBIDOPA\LEVODOPA
     Indication: Parkinson^s disease
     Dosage: MD 6.8ML CD: 4.4ML ED: 3.6ML END: 1.0ML NCD: 1.2ML, REMAINS AT 16 HOURS
     Route: 050
     Dates: start: 20231121, end: 20231203
  2. CARBIDOPA\LEVODOPA [Suspect]
     Active Substance: CARBIDOPA\LEVODOPA
     Dosage: MD 0.0 ML CD: 1.2ML/H ED: 1.5 ML NCD: 1.2ML/H
     Route: 050
     Dates: start: 20240212, end: 20240212
  3. CARBIDOPA\LEVODOPA [Suspect]
     Active Substance: CARBIDOPA\LEVODOPA
     Dosage: MD 6.8 ML; CD 4.2 ML/H; ED 3.6 ML; ND 0.0 ML; CND 1.2 ML; END 1.0 ML?REMAINS AT 16 HOURS
     Route: 050
     Dates: start: 20181029
  4. CARBIDOPA\LEVODOPA [Suspect]
     Active Substance: CARBIDOPA\LEVODOPA
     Dosage: MD 6.8ML CD: 4.4ML ED: 3.6ML END: 1.0ML NCD: 12.0ML
     Route: 050
     Dates: start: 20231203, end: 20240212
  5. CARBIDOPA\LEVODOPA [Suspect]
     Active Substance: CARBIDOPA\LEVODOPA
     Dosage: MD 0.0 ML CD: 1.2ML/H ED: 1.5 ML NCD: 1.2ML/H?LAST ADMIN DATE- 2024?DURATION TEXT: GOES TO 16 HOURS
     Route: 050
     Dates: start: 20240212
  6. CARBIDOPA\LEVODOPA [Suspect]
     Active Substance: CARBIDOPA\LEVODOPA
     Dosage: MD 6.8 ML; CD 4.4 ML/H; ED 3.6 ML; ND 0.0 ML; CND 1.2 ML; END 1.0 ML?DURATION TEXT: GOES TO 16 HOURS
     Route: 050
  7. PRAMIPEXOLE [Concomitant]
     Active Substance: PRAMIPEXOLE\PRAMIPEXOLE DIHYDROCHLORIDE
     Indication: Product used for unknown indication
  8. ENTACAPONE [Concomitant]
     Active Substance: ENTACAPONE
     Indication: Parkinson^s disease
  9. CARBIDOPA\LEVODOPA [Concomitant]
     Active Substance: CARBIDOPA\LEVODOPA
     Indication: Product used for unknown indication

REACTIONS (29)
  - Death [Fatal]
  - Dystonia [Not Recovered/Not Resolved]
  - Stoma complication [Not Recovered/Not Resolved]
  - Stoma site discharge [Not Recovered/Not Resolved]
  - Tremor [Not Recovered/Not Resolved]
  - Stoma site erythema [Not Recovered/Not Resolved]
  - On and off phenomenon [Not Recovered/Not Resolved]
  - Device issue [Recovered/Resolved]
  - Polyneuropathy [Not Recovered/Not Resolved]
  - Unevaluable event [Not Recovered/Not Resolved]
  - Loss of personal independence in daily activities [Not Recovered/Not Resolved]
  - Faeces hard [Not Recovered/Not Resolved]
  - Physical disability [Not Recovered/Not Resolved]
  - Infrequent bowel movements [Not Recovered/Not Resolved]
  - Listless [Not Recovered/Not Resolved]
  - Dyschezia [Not Recovered/Not Resolved]
  - Parkinson^s disease [Not Recovered/Not Resolved]
  - Memory impairment [Not Recovered/Not Resolved]
  - Muscle rigidity [Not Recovered/Not Resolved]
  - Musculoskeletal disorder [Not Recovered/Not Resolved]
  - Terminal state [Not Recovered/Not Resolved]
  - Wrong technique in device usage process [Recovered/Resolved]
  - Weight increased [Not Recovered/Not Resolved]
  - Loss of personal independence in daily activities [Not Recovered/Not Resolved]
  - Pain [Not Recovered/Not Resolved]
  - Dysphagia [Not Recovered/Not Resolved]
  - Gait inability [Not Recovered/Not Resolved]
  - Lethargy [Not Recovered/Not Resolved]
  - Apathy [Not Recovered/Not Resolved]

NARRATIVE: CASE EVENT DATE: 20240320
